FAERS Safety Report 10007402 (Version 3)
Quarter: 2014Q1

REPORT INFORMATION
  Report Type: Spontaneous
  Country: JP (occurrence: JP)
  Receive Date: 20140313
  Receipt Date: 20140328
  Transmission Date: 20141002
  Serious: Yes (Hospitalization)
  Sender: FDA-Public Use
  Company Number: JP-GLAXOSMITHKLINE-B0974968A

PATIENT
  Age: 89 Year
  Sex: Male

DRUGS (2)
  1. AVOLVE [Suspect]
     Indication: BENIGN PROSTATIC HYPERPLASIA
     Dosage: .5MG PER DAY
     Route: 048
     Dates: start: 201303, end: 201304
  2. URIEF [Suspect]
     Indication: BENIGN PROSTATIC HYPERPLASIA
     Dosage: 4MG TWICE PER DAY
     Route: 048
     Dates: start: 201303, end: 201304

REACTIONS (2)
  - Interstitial lung disease [Recovered/Resolved]
  - Asthenia [Unknown]
